FAERS Safety Report 9043582 (Version 1)
Quarter: 2013Q1

REPORT INFORMATION
  Report Type: Report from Study
  Country: US (occurrence: US)
  Receive Date: 20130129
  Receipt Date: 20130129
  Transmission Date: 20140127
  Serious: No
  Sender: FDA-Public Use
  Company Number: US-ABBOTT-12P-163-0911643-00

PATIENT
  Sex: Male
  Weight: 138.47 kg

DRUGS (3)
  1. HUMIRA 40 MG/0.8 ML PEN [Suspect]
     Indication: PSORIATIC ARTHROPATHY
     Route: 058
     Dates: start: 201103, end: 201201
  2. HUMIRA 40 MG/0.8 ML PEN [Suspect]
     Route: 058
     Dates: start: 201201
  3. UNKNOWN ANTIINFLAMMATORY DRUG [Concomitant]
     Indication: PSORIATIC ARTHROPATHY

REACTIONS (5)
  - Drug ineffective [Unknown]
  - Arthralgia [Unknown]
  - Skin plaque [Unknown]
  - Arthralgia [Unknown]
  - Pain in extremity [Unknown]
